FAERS Safety Report 6576856-3 (Version None)
Quarter: 2010Q1

REPORT INFORMATION
  Report Type: 
  Country: None (occurrence: None)
  Receive Date: 20100210
  Receipt Date: 20100202
  Transmission Date: 20100710
  Serious: Yes (Other)
  Sender: FDA-Public Use
  Company Number: A0795303A

PATIENT
  Age: 34 Year
  Sex: Female
  Weight: 72.7 kg

DRUGS (4)
  1. ACYCLOVIR [Suspect]
     Indication: HERPES VIRUS INFECTION
     Route: 061
     Dates: start: 20090625
  2. ZYRTEC [Concomitant]
     Indication: MULTIPLE ALLERGIES
     Dates: start: 20090625
  3. PREVACID [Concomitant]
     Dates: start: 20090625
  4. SYNTHROID [Concomitant]
     Dosage: 25MG PER DAY

REACTIONS (2)
  - DRUG EXPOSURE DURING PREGNANCY [None]
  - PREMATURE RUPTURE OF MEMBRANES [None]
